FAERS Safety Report 6103872-8 (Version None)
Quarter: 2009Q1

REPORT INFORMATION
  Report Type: 
  Country: None (occurrence: None)
  Receive Date: 20090302
  Receipt Date: 20090212
  Transmission Date: 20090719
  Serious: Yes (Life-Threatening, Hospitalization)
  Sender: FDA-Public Use
  Company Number: 2009S1002645

PATIENT
  Age: 84 Year
  Sex: Female

DRUGS (9)
  1. ALENDRONIC ACID (ALENDRONIC ACID) [Suspect]
     Indication: OSTEOPOROSIS
     Dosage: 70 MG; ORAL; WEEKLY
     Route: 048
     Dates: end: 20090204
  2. ADCAL-D3 (LEKOVIT CA) [Concomitant]
  3. AMITRIPTYLINE HYDROCHLORIDE [Concomitant]
  4. FLOXACILLIN SODIUM [Concomitant]
  5. FLUDROCORTISOINE (FLUDROCORTISONE) [Concomitant]
  6. HYDROCORTISONE [Concomitant]
  7. IBUPROFEN [Concomitant]
  8. OMEPRAZOLE [Concomitant]
  9. PARACETAMOL (PARACETAMOL) [Concomitant]

REACTIONS (2)
  - GASTROINTESTINAL HAEMORRHAGE [None]
  - MELAENA [None]
